FAERS Safety Report 5621152-1 (Version None)
Quarter: 2008Q1

REPORT INFORMATION
  Report Type: 
  Country: None (occurrence: None)
  Receive Date: 20080114
  Receipt Date: 20061128
  Transmission Date: 20080703
  Serious: Yes (Hospitalization)
  Sender: FDA-Public Use
  Company Number: A03200607164

PATIENT
  Age: 85 Year
  Sex: Female

DRUGS (4)
  1. PLAVIX [Suspect]
     Indication: TRANSIENT ISCHAEMIC ATTACK
     Dosage: 75 MG QD - ORAL
     Route: 048
     Dates: start: 20020315, end: 20061030
  2. QUINAPRIL HCL [Concomitant]
  3. OMEPRAZOLE [Concomitant]
  4. SPIRONOLACTONE [Concomitant]

REACTIONS (5)
  - FAECES DISCOLOURED [None]
  - FATIGUE [None]
  - GASTRITIS EROSIVE [None]
  - NAUSEA [None]
  - VOMITING [None]
